FAERS Safety Report 8405746-6 (Version None)
Quarter: 2012Q2

REPORT INFORMATION
  Report Type: 
  Country: None (occurrence: None)
  Receive Date: 20120530
  Receipt Date: 20120530
  Transmission Date: 20120825
  Serious: Yes (Disabling, Other)
  Sender: FDA-Public Use
  Company Number: None

PATIENT
  Age: 38 Year
  Sex: Female
  Weight: 136.0791 kg

DRUGS (2)
  1. FEN-PHEN DIET DRUGS [Suspect]
     Indication: WEIGHT CONTROL
     Dosage: 1 MONTH SUPPLY
     Dates: start: 19770501
  2. FEN-PHEN DIET DRUGS [Suspect]
     Indication: WEIGHT CONTROL
     Dosage: 1 MONTH SUPPLY
     Dates: start: 19770601

REACTIONS (8)
  - JOINT SWELLING [None]
  - ARTERIAL OCCLUSIVE DISEASE [None]
  - CHEST PAIN [None]
  - HYPERTENSION [None]
  - CARDIAC DISORDER [None]
  - PARALYSIS [None]
  - MUSCLE DISORDER [None]
  - ARTHROPATHY [None]
